FAERS Safety Report 6934332-X (Version None)
Quarter: 2010Q3

REPORT INFORMATION
  Report Type: 
  Country: None (occurrence: None)
  Receive Date: 20100820
  Receipt Date: 20100811
  Transmission Date: 20110219
  Serious: Yes (Other)
  Sender: FDA-Public Use
  Company Number: A0873646A

PATIENT
  Sex: Female

DRUGS (1)
  1. TYKERB [Suspect]
     Indication: PRODUCT USED FOR UNKNOWN INDICATION
     Dosage: 250MG TWICE PER DAY
     Route: 048
     Dates: start: 20100608, end: 20100714

REACTIONS (3)
  - BRAIN NEOPLASM [None]
  - DIARRHOEA [None]
  - DISEASE PROGRESSION [None]
